FAERS Safety Report 12313078 (Version 1)
Quarter: 2016Q2

REPORT INFORMATION
  Report Type: Report from Study
  Country: US (occurrence: US)
  Receive Date: 20160428
  Receipt Date: 20160428
  Transmission Date: 20160815
  Serious: Yes (Other)
  Sender: FDA-Public Use
  Company Number: PHEH2016US009833

PATIENT
  Age: 55 Year
  Sex: Female

DRUGS (1)
  1. SIGNIFOR LAR [Suspect]
     Active Substance: PASIREOTIDE
     Indication: ACROMEGALY
     Route: 065

REACTIONS (2)
  - Oxygen saturation decreased [Unknown]
  - Lung disorder [Unknown]

NARRATIVE: CASE EVENT DATE: 20160415
